FAERS Safety Report 5473711-7 (Version None)
Quarter: 2007Q3

REPORT INFORMATION
  Report Type: 
  Country: None (occurrence: None)
  Receive Date: 20070831
  Receipt Date: 20070625
  Transmission Date: 20080115
  Serious: No
  Sender: FDA-Public Use
  Company Number: 242565

PATIENT
  Age: 85 Year
  Sex: Female

DRUGS (5)
  1. LUCENTIS [Suspect]
     Indication: MACULAR DEGENERATION
     Dates: start: 20070524
  2. LOVASTATIN [Concomitant]
  3. ATENOLOL [Concomitant]
  4. WATER PILL (DIURETIC NOS) [Concomitant]
  5. PLAVIX [Concomitant]

REACTIONS (1)
  - VISUAL DISTURBANCE [None]
